FAERS Safety Report 13891014 (Version 3)
Quarter: 2019Q1

REPORT INFORMATION
  Report Type: Spontaneous
  Country: LV (occurrence: LV)
  Receive Date: 20170822
  Receipt Date: 20190323
  Transmission Date: 20190417
  Serious: Yes (Other)
  Sender: FDA-Public Use
  Company Number: LV-ACCORD-057623

PATIENT
  Age: 54 Year
  Sex: Male

DRUGS (3)
  1. OXALIPLATIN. [Suspect]
     Active Substance: OXALIPLATIN
     Indication: RECTAL CANCER
     Dosage: 250 MG, CYCLIC (6 CICLES)
     Route: 042
     Dates: start: 20151116, end: 20160323
  2. TEGAFUR/TEGAFUR SODIUM [Suspect]
     Active Substance: TEGAFUR
     Indication: RECTAL CANCER
     Dosage: D1-14 EVRY 3 WEEKS, FOR 6 CYCLES
     Route: 065
     Dates: start: 20151116, end: 20160323
  3. IRINOTECAN [Suspect]
     Active Substance: IRINOTECAN
     Indication: RECTAL CANCER
     Dosage: 600 MG D1 EVERY 3 WEEKS FROM THIRD CYCLE FOR 6 CYCLES,500 MG FROM 14-FEB-2017
     Route: 042
     Dates: start: 20161007, end: 20170214

REACTIONS (5)
  - Vomiting [Recovered/Resolved]
  - Polyneuropathy [Recovered/Resolved]
  - Alanine aminotransferase increased [Recovered/Resolved]
  - Nausea [Recovered/Resolved]
  - Aspartate aminotransferase increased [Recovered/Resolved]

NARRATIVE: CASE EVENT DATE: 20151215
